FAERS Safety Report 12851839 (Version 1)
Quarter: 2016Q4

REPORT INFORMATION
  Report Type: Spontaneous
  Country: DE (occurrence: DE)
  Receive Date: 20161017
  Receipt Date: 20161017
  Transmission Date: 20170207
  Serious: Yes (Hospitalization, Disabling, Other)
  Sender: FDA-Public Use
  Company Number: DE-SCIEGEN PHARMACEUTICALS INC-2016SCILIT00479

PATIENT
  Age: 68 Year
  Sex: Male

DRUGS (3)
  1. CLOPIDOGREL [Suspect]
     Active Substance: CLOPIDOGREL BISULFATE
     Indication: PRODUCT USED FOR UNKNOWN INDICATION
     Dosage: UNK
     Route: 065
  2. ACETYLSALICYLIC ACID [Suspect]
     Active Substance: ASPIRIN
     Indication: PRODUCT USED FOR UNKNOWN INDICATION
     Dosage: UNK
     Route: 065
  3. PHENPROCOUMON [Suspect]
     Active Substance: PHENPROCOUMON
     Indication: HEART VALVE REPLACEMENT
     Dosage: UNK
     Route: 065

REACTIONS (15)
  - Atrial fibrillation [Unknown]
  - International normalised ratio increased [Unknown]
  - Blindness [Not Recovered/Not Resolved]
  - Chorioretinal folds [Unknown]
  - Ocular retrobulbar haemorrhage [Unknown]
  - Visual acuity reduced [Not Recovered/Not Resolved]
  - Eye pain [Unknown]
  - Conjunctival oedema [None]
  - Optic discs blurred [Unknown]
  - Retinal vascular disorder [Unknown]
  - Exophthalmos [Unknown]
  - Conjunctival haemorrhage [Unknown]
  - Haematoma [Unknown]
  - Eyelid haematoma [Unknown]
  - Optic atrophy [Unknown]
